FAERS Safety Report 9680636 (Version 2)
Quarter: 2014Q2

REPORT INFORMATION
  Report Type: Spontaneous
  Country: US (occurrence: US)
  Receive Date: 20131111
  Receipt Date: 20140624
  Transmission Date: 20141212
  Serious: No
  Sender: FDA-Public Use
  Company Number: US-PFIZER INC-2013320766

PATIENT
  Age: 71 Year
  Sex: Male
  Weight: 95.24 kg

DRUGS (2)
  1. GABAPENTIN [Suspect]
     Indication: NEUROPATHY PERIPHERAL
     Dosage: 600 MG, 2X/DAY
     Route: 048
     Dates: end: 2013
  2. GABAPENTIN [Suspect]
     Indication: NEURALGIA

REACTIONS (1)
  - Drug ineffective [Unknown]
